FAERS Safety Report 6115790-X (Version None)
Quarter: 2009Q1

REPORT INFORMATION
  Report Type: 
  Country: None (occurrence: None)
  Receive Date: 20090311
  Receipt Date: 20090226
  Transmission Date: 20090719
  Serious: Yes (Death, Hospitalization)
  Sender: FDA-Public Use
  Company Number: 230090M09USA

PATIENT
  Age: 42 Year
  Sex: Female

DRUGS (1)
  1. REBIF [Suspect]
     Indication: MULTIPLE SCLEROSIS
     Dosage: NOT REPORTED
     Dates: start: 20080908, end: 20090101

REACTIONS (5)
  - ACUTE RESPIRATORY FAILURE [None]
  - ASPIRATION [None]
  - CARDIAC ARREST [None]
  - CARDIAC FAILURE [None]
  - PNEUMONIA [None]
